FAERS Safety Report 22286376 (Version 1)
Quarter: 2023Q2

REPORT INFORMATION
  Report Type: Spontaneous
  Country: US (occurrence: US)
  Receive Date: 20230505
  Receipt Date: 20230505
  Transmission Date: 20230721
  Serious: Yes (Hospitalization, Other)
  Sender: FDA-Public Use
  Company Number: US-MLMSERVICE-20230419-4234130-1

PATIENT

DRUGS (2)
  1. DOXYCYCLINE [Suspect]
     Active Substance: DOXYCYCLINE
     Indication: Staphylococcal infection
     Dosage: 1 DOSAGE FORM, INITIATION OF DOXYCYCLINE MONTHS PRIOR
     Route: 065
  2. DOXYCYCLINE [Suspect]
     Active Substance: DOXYCYCLINE
     Indication: Vascular device infection

REACTIONS (4)
  - Nephrogenic diabetes insipidus [Recovered/Resolved]
  - Polyuria [Recovered/Resolved]
  - Dehydration [Recovered/Resolved]
  - Product use in unapproved indication [Recovered/Resolved]
